FAERS Safety Report 11167953 (Version 1)
Quarter: 2015Q2

REPORT INFORMATION
  Report Type: Report from Study
  Country: US (occurrence: None)
  Receive Date: 20150603
  Receipt Date: 20150603
  Transmission Date: 20150821
  Serious: Yes (Hospitalization)
  Sender: FDA-Public Use
  Company Number: 2015SA001882

PATIENT
  Age: 63 Year
  Sex: Female

DRUGS (1)
  1. RENVELA [Suspect]
     Active Substance: SEVELAMER CARBONATE
     Indication: HYPERPHOSPHATAEMIA
     Dosage: 10.4 GRAM(S); DAILY; ORAL
     Route: 048

REACTIONS (2)
  - Dizziness [None]
  - Pruritus [None]

NARRATIVE: CASE EVENT DATE: 20150508
